FAERS Safety Report 7959668-5 (Version None)
Quarter: 2011Q4

REPORT INFORMATION
  Report Type: 
  Country: None (occurrence: None)
  Receive Date: 20111206
  Receipt Date: 20111123
  Transmission Date: 20120403
  Serious: Yes (Hospitalization)
  Sender: FDA-Public Use
  Company Number: FR-US-EMD SERONO, INC.-7097962

PATIENT
  Age: 42 Year
  Sex: Female

DRUGS (4)
  1. CHORIONIC GONADOTROPIN [Suspect]
     Indication: OVULATION INDUCTION
     Route: 058
     Dates: start: 20100101, end: 20100101
  2. GONAL-F [Suspect]
     Indication: OVULATION INDUCTION
     Route: 058
     Dates: start: 20100101, end: 20100101
  3. GONAL-F [Suspect]
     Dates: start: 20110601, end: 20110601
  4. CHORIONIC GONADOTROPIN [Suspect]
     Route: 058
     Dates: start: 20110601, end: 20110601

REACTIONS (1)
  - ECTOPIC PREGNANCY [None]
